FAERS Safety Report 9970070 (Version 1)
Quarter: 2014Q1

REPORT INFORMATION
  Report Type: Spontaneous
  Country: US (occurrence: None)
  Receive Date: 20140131
  Receipt Date: 20140131
  Transmission Date: 20141002
  Serious: Yes (Hospitalization, Disabling)
  Sender: FDA-Public Use
  Company Number: 095829

PATIENT
  Sex: Male

DRUGS (3)
  1. LEVETIRACETAM [Suspect]
     Indication: CONVULSION
  2. DEPAKOTE [Concomitant]
  3. CLONOPIN [Concomitant]

REACTIONS (4)
  - Epilepsy [None]
  - Overdose [None]
  - Inappropriate schedule of drug administration [None]
  - Drug ineffective [None]
